FAERS Safety Report 6487258-2 (Version None)
Quarter: 2009Q4

REPORT INFORMATION
  Report Type: 
  Country: None (occurrence: None)
  Receive Date: 20091210
  Receipt Date: 20091201
  Transmission Date: 20100525
  Serious: Yes (Other)
  Sender: FDA-Public Use
  Company Number: CA-JNJFOC-20090908439

PATIENT
  Sex: Female

DRUGS (2)
  1. SUPER STRENGTH MOTRIN [Suspect]
     Route: 048
  2. SUPER STRENGTH MOTRIN [Suspect]
     Indication: DRUG USE FOR UNKNOWN INDICATION
     Route: 048

REACTIONS (2)
  - EYE INJURY [None]
  - PRODUCT QUALITY ISSUE [None]
